FAERS Safety Report 5789517-5 (Version None)
Quarter: 2008Q2

REPORT INFORMATION
  Report Type: 
  Country: None (occurrence: None)
  Receive Date: 20080626
  Receipt Date: 20080208
  Transmission Date: 20081010
  Serious: No
  Sender: FDA-Public Use
  Company Number: A0708230A

PATIENT
  Age: 61 Year
  Sex: Female

DRUGS (5)
  1. ALLI [Suspect]
     Route: 048
     Dates: start: 20080130
  2. DARVOCET [Concomitant]
  3. ELAVIL [Concomitant]
  4. SEROQUEL [Concomitant]
  5. SYNTHROID [Concomitant]

REACTIONS (1)
  - INFREQUENT BOWEL MOVEMENTS [None]
